FAERS Safety Report 18059587 (Version 2)
Quarter: 2020Q3

REPORT INFORMATION
  Report Type: Report from Study
  Country: BG (occurrence: BG)
  Receive Date: 20200723
  Receipt Date: 20200807
  Transmission Date: 20201103
  Serious: No
  Sender: FDA-Public Use
  Company Number: BG-PFIZER INC-2020278093

PATIENT

DRUGS (1)
  1. TIGECYCLINE. [Suspect]
     Active Substance: TIGECYCLINE
     Indication: NEUROBORRELIOSIS
     Dosage: 50 MG, 2X/DAY
     Route: 042

REACTIONS (1)
  - Jarisch-Herxheimer reaction [Unknown]
